FAERS Safety Report 9581117 (Version 1)
Quarter: 2013Q4

REPORT INFORMATION
  Report Type: Spontaneous
  Country: US (occurrence: US)
  Receive Date: 20131002
  Receipt Date: 20131002
  Transmission Date: 20140711
  Serious: Yes (Hospitalization, Other)
  Sender: FDA-Public Use
  Company Number: US-GILEAD-2013-0084593

PATIENT
  Age: 66 Year
  Sex: Female

DRUGS (3)
  1. LETAIRIS [Suspect]
     Indication: PULMONARY HYPERTENSION
     Dosage: 10 MG, QD
     Route: 048
     Dates: start: 20110826
  2. REVATIO [Concomitant]
     Indication: PULMONARY ARTERIAL HYPERTENSION
  3. ASPIRIN [Concomitant]

REACTIONS (1)
  - Gastric haemorrhage [Recovered/Resolved]
